FAERS Safety Report 8267709-3 (Version None)
Quarter: 2012Q2

REPORT INFORMATION
  Report Type: 
  Country: None (occurrence: None)
  Receive Date: 20120409
  Receipt Date: 20120329
  Transmission Date: 20120825
  Serious: Yes (Other)
  Sender: FDA-Public Use
  Company Number: AT-ELI_LILLY_AND_COMPANY-AT201204000463

PATIENT
  Age: 82 Year
  Sex: Female

DRUGS (3)
  1. TRAMADOL HYDROCHLORIDE [Concomitant]
     Dosage: UNK, UNKNOWN
     Route: 065
  2. LORAZEPAM [Concomitant]
     Dosage: UNK, QD
     Route: 065
  3. TERIPARATIDE [Suspect]
     Indication: OSTEOPOROSIS
     Dosage: UNK, QD
     Route: 058
     Dates: start: 20120320, end: 20120329

REACTIONS (1)
  - ARRHYTHMIA [None]
